FAERS Safety Report 10308788 (Version 1)
Quarter: 2014Q3

REPORT INFORMATION
  Report Type: Spontaneous
  Country: ES (occurrence: ES)
  Receive Date: 20140716
  Receipt Date: 20140716
  Transmission Date: 20150326
  Serious: Yes (Hospitalization)
  Sender: FDA-Public Use
  Company Number: PHHY2014ES085406

PATIENT
  Age: 75 Year
  Sex: Male

DRUGS (4)
  1. DEXKETOPROFEN TROMETAMOL [Suspect]
     Active Substance: DEXKETOPROFEN TROMETAMOL
     Indication: BACK PAIN
     Dosage: 25 MG, TID
     Dates: start: 201012
  2. OMEPRAZOLE. [Concomitant]
     Active Substance: OMEPRAZOLE
     Indication: BACK PAIN
     Dosage: 20 MG, UNK
     Dates: start: 201012
  3. ACETYLSALICYLIC ACID [Suspect]
     Active Substance: ASPIRIN
     Indication: CEREBROVASCULAR ACCIDENT
     Dosage: 100 MG, UNK
  4. PARACETAMOL [Concomitant]
     Active Substance: ACETAMINOPHEN
     Indication: BACK PAIN
     Dosage: 650 MG, UNK

REACTIONS (12)
  - Cough [Unknown]
  - Chest discomfort [Unknown]
  - Nasal congestion [Unknown]
  - Dysphonia [Unknown]
  - Dyspnoea [Unknown]
  - Asthma [Unknown]
  - Tachypnoea [Unknown]
  - Hypoxia [Unknown]
  - Hyposmia [Unknown]
  - Respiratory disorder [Unknown]
  - Wheezing [Unknown]
  - Rhinitis [Unknown]
